FAERS Safety Report 13442022 (Version 1)
Quarter: 2017Q2

REPORT INFORMATION
  Report Type: Spontaneous
  Country: SE (occurrence: SE)
  Receive Date: 20170414
  Receipt Date: 20170414
  Transmission Date: 20170830
  Serious: Yes (Hospitalization)
  Sender: FDA-Public Use
  Company Number: SE-JNJFOC-20170400201

PATIENT
  Age: 16 Year
  Sex: Female

DRUGS (3)
  1. IPREN [Suspect]
     Active Substance: IBUPROFEN
     Indication: DYSMENORRHOEA
     Dosage: 4 TABLETS OF 400 MG
     Route: 065
     Dates: start: 20161115, end: 20161115
  2. IPREN [Suspect]
     Active Substance: IBUPROFEN
     Route: 065
  3. ALVEDON [Suspect]
     Active Substance: ACETAMINOPHEN
     Indication: DYSMENORRHOEA
     Dosage: 70 TABLETS WERE SAID TO HAVE BEEN TAKEN BUT THE REPORTER STATED THAT AMOUNT WAS UNCLEAR
     Route: 048
     Dates: start: 20161115, end: 20161115

REACTIONS (4)
  - Analgesic drug level increased [Recovered/Resolved]
  - Abdominal pain upper [Recovered/Resolved]
  - Vomiting [Recovered/Resolved]
  - Accidental overdose [Recovered/Resolved]

NARRATIVE: CASE EVENT DATE: 20161115
